FAERS Safety Report 15916436 (Version 2)
Quarter: 2019Q1

REPORT INFORMATION
  Report Type: Spontaneous
  Country: IN (occurrence: IN)
  Receive Date: 20190204
  Receipt Date: 20190204
  Transmission Date: 20190417
  Serious: Yes (Hospitalization, Other)
  Sender: FDA-Public Use
  Company Number: PHHY2019IN020542

PATIENT
  Age: 34 Year
  Sex: Female

DRUGS (3)
  1. CICLOSPORIN [Suspect]
     Active Substance: CYCLOSPORINE
     Dosage: 4 MG/KG, QD TWO DIVIDED DOSES
     Route: 042
  2. CICLOSPORIN [Suspect]
     Active Substance: CYCLOSPORINE
     Indication: TOXIC EPIDERMAL NECROLYSIS
     Dosage: TAPERING AT A RATE OF 0.5 MG/KG/DAY
     Route: 042
  3. CICLOSPORIN [Suspect]
     Active Substance: CYCLOSPORINE
     Dosage: 2 MG/KG, QD
     Route: 042

REACTIONS (3)
  - Product use in unapproved indication [Unknown]
  - Neurotoxicity [Recovering/Resolving]
  - Toxic leukoencephalopathy [Recovering/Resolving]
